FAERS Safety Report 4474110-7 (Version None)
Quarter: 2004Q4

REPORT INFORMATION
  Report Type: 
  Country: None (occurrence: None)
  Receive Date: 20041008
  Receipt Date: 20040927
  Transmission Date: 20050328
  Serious: Yes (Death)
  Sender: FDA-Public Use
  Company Number: BRO-007775

PATIENT
  Age: 54 Year
  Sex: Male

DRUGS (1)
  1. IOPAMIDOL/IOPMIRON 370 (BATCH #(S): UNK) [Suspect]
     Indication: ARTERIOGRAM CORONARY
     Route: 022
     Dates: start: 20040811, end: 20040811

REACTIONS (2)
  - CARDIAC PROCEDURE COMPLICATION [None]
  - SHOCK [None]
